FAERS Safety Report 4680088-3 (Version None)
Quarter: 2005Q2

REPORT INFORMATION
  Report Type: 
  Country: None (occurrence: None)
  Receive Date: 20050531
  Receipt Date: 20050513
  Transmission Date: 20051028
  Serious: Yes (Other)
  Sender: FDA-Public Use
  Company Number: DSA\-26461_2005

PATIENT
  Age: 57 Year
  Sex: Female

DRUGS (2)
  1. HERBESSER ^DELTA^ [Suspect]
     Indication: HYPERTENSION
     Dosage: 20 MCG/KG/MIN IV
     Route: 042
  2. LIDOCAINE [Concomitant]

REACTIONS (8)
  - BRADYCARDIA [None]
  - CARDIAC ARREST [None]
  - CEREBRAL HAEMORRHAGE [None]
  - DEPRESSED LEVEL OF CONSCIOUSNESS [None]
  - DIALYSIS [None]
  - PROCEDURAL COMPLICATION [None]
  - SHUNT OCCLUSION [None]
  - VENTRICULAR EXTRASYSTOLES [None]
